FAERS Safety Report 24396393 (Version 2)
Quarter: 2024Q4

REPORT INFORMATION
  Report Type: Spontaneous
  Country: DE (occurrence: DE)
  Receive Date: 20241004
  Receipt Date: 20241018
  Transmission Date: 20250115
  Serious: Yes (Other)
  Sender: RANBAXY
  Company Number: DE-SUN PHARMACEUTICAL INDUSTRIES LTD-2024R1-471187

PATIENT
  Age: 42 Year
  Sex: Female

DRUGS (3)
  1. PREDNISOLONE [Suspect]
     Active Substance: PREDNISOLONE
     Indication: Scleritis
     Dosage: UNK
     Route: 048
  2. TRIAMCINOLONE [Suspect]
     Active Substance: TRIAMCINOLONE
     Indication: Scleritis
     Dosage: UNK (}30)
     Route: 057
  3. CYCLOPHOSPHAMIDE [Suspect]
     Active Substance: CYCLOPHOSPHAMIDE
     Indication: Scleritis
     Dosage: UNK
     Route: 065
     Dates: start: 201907, end: 202001

REACTIONS (1)
  - Treatment failure [Unknown]
